FAERS Safety Report 16331102 (Version 1)
Quarter: 2019Q2

REPORT INFORMATION
  Report Type: Spontaneous
  Country: US (occurrence: US)
  Receive Date: 20190520
  Receipt Date: 20190520
  Transmission Date: 20190711
  Serious: Yes (Hospitalization)
  Sender: FDA-Public Use
  Company Number: US-ELI_LILLY_AND_COMPANY-US201905007440

PATIENT
  Sex: Female

DRUGS (4)
  1. METFORMIN [Concomitant]
     Active Substance: METFORMIN HYDROCHLORIDE
     Indication: TYPE 2 DIABETES MELLITUS
     Dosage: 500 MG, BID
  2. NOVOLOG [Concomitant]
     Active Substance: INSULIN ASPART
     Indication: TYPE 2 DIABETES MELLITUS
     Dosage: 40 INTERNATIONAL UNIT, PRN (BEFORE EACH MEAL)
  3. HUMULIN N [Suspect]
     Active Substance: INSULIN HUMAN
     Indication: TYPE 2 DIABETES MELLITUS
     Dosage: 55 INTERNATIONAL UNIT, EACH MORNING
     Route: 058
     Dates: start: 2012
  4. HUMULIN N [Suspect]
     Active Substance: INSULIN HUMAN
     Dosage: 45 INTERNATIONAL UNIT, EACH EVENING
     Route: 058
     Dates: start: 2012

REACTIONS (3)
  - Diabetes mellitus inadequate control [Recovered/Resolved]
  - Fibromyalgia [Recovered/Resolved]
  - Blood glucose increased [Not Recovered/Not Resolved]

NARRATIVE: CASE EVENT DATE: 201611
